FAERS Safety Report 9136412 (Version 1)
Quarter: 2013Q1

REPORT INFORMATION
  Report Type: Spontaneous
  Country: US (occurrence: US)
  Receive Date: 20130219
  Receipt Date: 20130219
  Transmission Date: 20140127
  Serious: No
  Sender: FDA-Public Use
  Company Number: US-BRISTOL-MYERS SQUIBB COMPANY-16833634

PATIENT
  Age: 50 Year
  Sex: Female

DRUGS (16)
  1. ORENCIA [Suspect]
     Indication: RHEUMATOID ARTHRITIS
     Route: 058
     Dates: start: 20120625
  2. PREDNISONE [Concomitant]
  3. METHOTREXATE [Concomitant]
  4. FOLIC ACID [Concomitant]
  5. CALCIUM [Concomitant]
  6. MELOXICAM [Concomitant]
  7. MULTIVITAMIN [Concomitant]
  8. LEFLUNOMIDE [Concomitant]
  9. CARVEDILOL [Concomitant]
  10. FUROSEMIDE [Concomitant]
  11. LISINOPRIL [Concomitant]
  12. SPIRONOLACTONE [Concomitant]
  13. ASPIRIN [Concomitant]
  14. ONDANSETRON [Concomitant]
  15. OMEGA-3 [Concomitant]
  16. KRILL OIL [Concomitant]

REACTIONS (2)
  - Diarrhoea [Unknown]
  - Fall [Unknown]
